FAERS Safety Report 5030215-3 (Version None)
Quarter: 2006Q2

REPORT INFORMATION
  Report Type: 
  Country: None (occurrence: None)
  Receive Date: 20060614
  Receipt Date: 20060601
  Transmission Date: 20061013
  Serious: Yes (Hospitalization)
  Sender: FDA-Public Use
  Company Number: CLOF-10249

PATIENT
  Age: 20 Year
  Sex: Male

DRUGS (1)
  1. CLOFARABINE [Suspect]
     Indication: ACUTE LYMPHOCYTIC LEUKAEMIA
     Dosage: 52 MG/M2 IV
     Route: 042
     Dates: start: 20060428

REACTIONS (5)
  - ANAL INFLAMMATION [None]
  - ANOREXIA [None]
  - ASTHENIA [None]
  - FATIGUE [None]
  - NEUTROPENIA [None]
